FAERS Safety Report 8830606 (Version 1)
Quarter: 2012Q4

REPORT INFORMATION
  Report Type: Spontaneous
  Country: US (occurrence: None)
  Receive Date: 20121005
  Receipt Date: 20121005
  Transmission Date: 20130627
  Serious: Yes (Other)
  Sender: FDA-Public Use
  Company Number: FK201202853

PATIENT
  Age: 74 Year

DRUGS (3)
  1. DEXAMETHASONE [Suspect]
     Indication: MULTIPLE MYELOMA
  2. VELCADE [Suspect]
     Indication: MULTIPLE MYELOMA
  3. CYTOXAN [Suspect]
     Indication: MULTIPLE MYELOMA

REACTIONS (3)
  - Pneumonia [None]
  - Pleural effusion [None]
  - Atelectasis [None]
